FAERS Safety Report 9770959 (Version 2)
Quarter: 2013Q4

REPORT INFORMATION
  Report Type: Other
  Country: FR (occurrence: FR)
  Receive Date: 20131218
  Receipt Date: 20131218
  Transmission Date: 20140711
  Serious: Yes (Other)
  Sender: FDA-Public Use
  Company Number: FR-CUBIST PHARMACEUTICAL, INC.-2013CBST001083

PATIENT
  Sex: 0

DRUGS (4)
  1. CUBICIN [Suspect]
     Indication: PRODUCT USED FOR UNKNOWN INDICATION
     Dosage: UNK UNK, UNK
     Route: 042
     Dates: start: 201310, end: 20131028
  2. CUBICIN [Suspect]
     Dosage: UNK UNK, UNK
     Route: 042
     Dates: start: 20131029
  3. CLAVENTIN /00756801/ [Suspect]
     Indication: PRODUCT USED FOR UNKNOWN INDICATION
     Dosage: UNK, UNK
     Route: 042
     Dates: end: 20131028
  4. CLAVENTIN /00756801/ [Suspect]
     Dosage: UNK, UNK
     Route: 042
     Dates: start: 20131031

REACTIONS (1)
  - Infusion site extravasation [Recovering/Resolving]
